FAERS Safety Report 4657972-X (Version None)
Quarter: 2005Q2

REPORT INFORMATION
  Report Type: 
  Country: None (occurrence: None)
  Receive Date: 20050510
  Receipt Date: 20050502
  Transmission Date: 20051028
  Serious: Yes (Other)
  Sender: FDA-Public Use
  Company Number: PHBS2005IT06276

PATIENT
  Age: 63 Year
  Sex: Male

DRUGS (2)
  1. ZOMETA [Suspect]
     Indication: METASTASES TO BONE
     Dosage: 4 MG, QMO
     Route: 042
     Dates: start: 20030301, end: 20050201
  2. NOVANTRONE [Suspect]
     Dosage: 18 MG/D
     Route: 042
     Dates: start: 20040801, end: 20041201

REACTIONS (2)
  - ASEPTIC NECROSIS BONE [None]
  - BONE DEBRIDEMENT [None]
